FAERS Safety Report 6796298-5 (Version None)
Quarter: 2010Q2

REPORT INFORMATION
  Report Type: 
  Country: None (occurrence: None)
  Receive Date: 20100624
  Receipt Date: 20100624
  Transmission Date: 20101027
  Serious: Yes (Life-Threatening, Hospitalization)
  Sender: FDA-Public Use
  Company Number: None

PATIENT
  Age: 20 Year
  Sex: Female
  Weight: 90.7194 kg

DRUGS (1)
  1. MIRENA [Suspect]

REACTIONS (5)
  - APPARENT LIFE THREATENING EVENT [None]
  - BACTERIAL INFECTION [None]
  - DEPRESSION [None]
  - PELVIC INFLAMMATORY DISEASE [None]
  - UTERINE INFECTION [None]
